FAERS Safety Report 4739225-4 (Version None)
Quarter: 2005Q3

REPORT INFORMATION
  Report Type: 
  Country: None (occurrence: None)
  Receive Date: 20050810
  Receipt Date: 20050527
  Transmission Date: 20060218
  Serious: Yes (Other)
  Sender: FDA-Public Use
  Company Number: US-GLAXOSMITHKLINE-A0560379A

PATIENT
  Sex: Female

DRUGS (8)
  1. PAXIL CR [Suspect]
     Indication: DEPRESSION
     Dosage: 50MG PER DAY
     Route: 048
     Dates: start: 20050201
  2. SYNTHROID [Concomitant]
  3. NEXIUM [Concomitant]
  4. ALLEGRA-D [Concomitant]
  5. SOMA [Concomitant]
  6. DARVOCET [Concomitant]
  7. METHADONE [Concomitant]
  8. DILAUDID [Concomitant]

REACTIONS (1)
  - LIVER FUNCTION TEST ABNORMAL [None]
